FAERS Safety Report 11741588 (Version 1)
Quarter: 2015Q4

REPORT INFORMATION
  Report Type: Spontaneous
  Country: US (occurrence: None)
  Receive Date: 20151113
  Receipt Date: 20151113
  Transmission Date: 20160304
  Serious: Yes (Disabling)
  Sender: FDA-Public Use
  Company Number: None

PATIENT
  Age: 64 Year
  Sex: Male
  Weight: 83.46 kg

DRUGS (11)
  1. HYDROCHLOROTHIAZIDE. [Concomitant]
     Active Substance: HYDROCHLOROTHIAZIDE
  2. CURCUMIN [Concomitant]
     Active Substance: CURCUMIN
  3. VITAMIN C [Concomitant]
     Active Substance: ASCORBIC ACID
  4. LISINOPRIL. [Concomitant]
     Active Substance: LISINOPRIL
  5. RESTASIS [Concomitant]
     Active Substance: CYCLOSPORINE
  6. RANITIDINE [Concomitant]
     Active Substance: RANITIDINE\RANITIDINE HYDROCHLORIDE
  7. PRESERVATIVE-FREE LUBRICANT EYE DROPS [Concomitant]
  8. BIOASTIN [Concomitant]
  9. LOTEMAX [Suspect]
     Active Substance: LOTEPREDNOL ETABONATE
     Indication: EYE INFLAMMATION
     Dosage: 1 DROP EACH EYE; INSTILL IN EYE
     Route: 047
     Dates: start: 20151030, end: 20151101
  10. ATENOLOL. [Concomitant]
     Active Substance: ATENOLOL
  11. SIMVASTATIN. [Concomitant]
     Active Substance: SIMVASTATIN

REACTIONS (6)
  - Instillation site erythema [None]
  - Instillation site dryness [None]
  - Instillation site irritation [None]
  - Foreign body sensation in eyes [None]
  - Reaction to preservatives [None]
  - Instillation site swelling [None]

NARRATIVE: CASE EVENT DATE: 20151030
